FAERS Safety Report 18609822 (Version 1)
Quarter: 2020Q4

REPORT INFORMATION
  Report Type: Spontaneous
  Country: CN (occurrence: CN)
  Receive Date: 20201214
  Receipt Date: 20201214
  Transmission Date: 20210114
  Serious: Yes (Other)
  Sender: FDA-Public Use
  Company Number: CN-SA-2020SA351833

PATIENT

DRUGS (2)
  1. ELOXATIN [Suspect]
     Active Substance: OXALIPLATIN
     Indication: NEOPLASM
     Dosage: 165 MG, QD
     Route: 041
     Dates: start: 20201120, end: 20201120
  2. GLUCOSE [Concomitant]
     Active Substance: DEXTROSE
     Indication: VEHICLE SOLUTION USE
     Dosage: 500 ML, QD
     Route: 041
     Dates: start: 20201120, end: 20201120

REACTIONS (3)
  - Conjunctival hyperaemia [Recovering/Resolving]
  - Dyspnoea [Recovering/Resolving]
  - Flushing [Recovering/Resolving]

NARRATIVE: CASE EVENT DATE: 20201120
